FAERS Safety Report 18151592 (Version 3)
Quarter: 2022Q3

REPORT INFORMATION
  Report Type: Other
  Country: US (occurrence: None)
  Receive Date: 20200814
  Receipt Date: 20220906
  Transmission Date: 20221026
  Serious: Yes (Other)
  Sender: FDA-Public Use
  Company Number: MX-ROCHE-2655399

PATIENT
  Sex: Male
  Weight: 0.835 kg

DRUGS (1)
  1. BEVACIZUMAB [Suspect]
     Active Substance: BEVACIZUMAB
     Indication: Retinopathy of prematurity
     Dosage: 0.675MG/0.03ML
     Route: 050

REACTIONS (3)
  - Tractional retinal detachment [Recovered/Resolved]
  - Off label use [Unknown]
  - Off label use [Unknown]
